FAERS Safety Report 5401449-0 (Version None)
Quarter: 2007Q3

REPORT INFORMATION
  Report Type: 
  Country: None (occurrence: None)
  Receive Date: 20070731
  Receipt Date: 20070730
  Transmission Date: 20080115
  Serious: Yes (Other)
  Sender: FDA-Public Use
  Company Number: A0667093A

PATIENT
  Age: 40 Year
  Sex: Female

DRUGS (2)
  1. NICOTINE [Suspect]
     Indication: SMOKING CESSATION THERAPY
     Route: 002
     Dates: start: 20070305, end: 20070620
  2. SERTRALINE [Concomitant]
     Indication: DEPRESSION
     Route: 048

REACTIONS (3)
  - DIARRHOEA HAEMORRHAGIC [None]
  - PROCTITIS [None]
  - RECTAL HAEMORRHAGE [None]
